FAERS Safety Report 19163168 (Version 1)
Quarter: 2021Q2

REPORT INFORMATION
  Report Type: Spontaneous
  Country: US (occurrence: US)
  Receive Date: 20210421
  Receipt Date: 20210421
  Transmission Date: 20210717
  Serious: No
  Sender: FDA-Public Use
  Company Number: US-INSMED, INC.-US-INS-21-00104

PATIENT
  Age: 37 Year
  Sex: Female

DRUGS (1)
  1. ARIKAYCE [Suspect]
     Active Substance: AMIKACIN
     Indication: MYCOBACTERIAL INFECTION
     Dosage: 590 MILLIGRAM
     Route: 055
     Dates: start: 20201218, end: 20201223

REACTIONS (3)
  - Chest pain [Unknown]
  - Feeling abnormal [Unknown]
  - Aphonia [Recovering/Resolving]

NARRATIVE: CASE EVENT DATE: 20201223
